FAERS Safety Report 5116361-4 (Version None)
Quarter: 2006Q3

REPORT INFORMATION
  Report Type: 
  Country: None (occurrence: None)
  Receive Date: 20060925
  Receipt Date: 20051114
  Transmission Date: 20061208
  Serious: Yes (Other)
  Sender: FDA-Public Use
  Company Number: 2005BH003040

PATIENT
  Age: 54 Year
  Sex: Male

DRUGS (8)
  1. DEXAMETHASONE TAB [Suspect]
     Indication: MULTIPLE MYELOMA
  2. CYCLOPHOSPHAMIDE [Suspect]
     Indication: MULTIPLE MYELOMA
  3. VINCRISTINE SULFATE [Suspect]
     Indication: MULTIPLE MYELOMA
  4. METHYLPREDNISOLONE [Suspect]
     Indication: MULTIPLE MYELOMA
  5. THALIDOMIDE [Suspect]
     Indication: MULTIPLE MYELOMA
     Dosage: 400 MG;1 DAY;
  6. MELPHALAN [Suspect]
     Indication: MULTIPLE MYELOMA
  7. PREDNISONE [Suspect]
     Indication: MULTIPLE MYELOMA
  8. ADRIAMYCIN PFS [Suspect]
     Indication: MULTIPLE MYELOMA

REACTIONS (2)
  - MALIGNANT TRANSFORMATION [None]
  - PLASMACYTOMA [None]
